FAERS Safety Report 23096304 (Version 2)
Quarter: 2023Q4

REPORT INFORMATION
  Report Type: Spontaneous
  Country: JP (occurrence: JP)
  Receive Date: 20231023
  Receipt Date: 20231115
  Transmission Date: 20240109
  Serious: No
  Sender: FDA-Public Use
  Company Number: JP-PFIZER INC-202300315581

PATIENT
  Sex: Female
  Weight: 33 kg

DRUGS (1)
  1. NORDITROPIN [Suspect]
     Active Substance: SOMATROPIN
     Indication: Growth hormone deficiency
     Dosage: 0.70 MG, DAILY
     Dates: start: 20190411, end: 202307

REACTIONS (1)
  - Injection site pain [Unknown]
